FAERS Safety Report 25110562 (Version 6)
Quarter: 2025Q2

REPORT INFORMATION
  Report Type: Report from Study
  Country: JP (occurrence: JP)
  Receive Date: 20250324
  Receipt Date: 20250612
  Transmission Date: 20250717
  Serious: Yes (Death, Other)
  Sender: TAKEDA
  Company Number: JP-TAKEDA-2025TJP003060

PATIENT
  Age: 51 Year
  Sex: Female
  Weight: 56.4 kg

DRUGS (12)
  1. MARIBAVIR [Suspect]
     Active Substance: MARIBAVIR
     Indication: Cytomegalovirus infection
     Dates: start: 20241028, end: 20241103
  2. RUXOLITINIB [Concomitant]
     Active Substance: RUXOLITINIB
  3. URSODIOL [Concomitant]
     Active Substance: URSODIOL
  4. CARVEDILOL [Concomitant]
     Active Substance: CARVEDILOL
  5. ZOVIRAX [Concomitant]
     Active Substance: ACYCLOVIR
  6. DAYVIGO [Concomitant]
     Active Substance: LEMBOREXANT
  7. NOVAMIN [Concomitant]
  8. SULFAMETHOXAZOLE\TRIMETHOPRIM [Concomitant]
     Active Substance: SULFAMETHOXAZOLE\TRIMETHOPRIM
  9. FEBUXOSTAT [Concomitant]
     Active Substance: FEBUXOSTAT
  10. FLUCONAZOLE [Concomitant]
     Active Substance: FLUCONAZOLE
  11. FUROSEMIDE [Concomitant]
     Active Substance: FUROSEMIDE
  12. LANSOPRAZOLE [Concomitant]
     Active Substance: LANSOPRAZOLE

REACTIONS (1)
  - Pneumonia cytomegaloviral [Fatal]

NARRATIVE: CASE EVENT DATE: 20241001
